FAERS Safety Report 23311437 (Version 2)
Quarter: 2024Q1

REPORT INFORMATION
  Report Type: Report from Study
  Country: CO (occurrence: CO)
  Receive Date: 20231219
  Receipt Date: 20240305
  Transmission Date: 20240409
  Serious: Yes (Hospitalization)
  Sender: FDA-Public Use
  Company Number: CO-002147023-NVSC2023CO267924

PATIENT
  Sex: Male
  Weight: 22 kg

DRUGS (1)
  1. ELTROMBOPAG OLAMINE [Suspect]
     Active Substance: ELTROMBOPAG OLAMINE
     Indication: Immune thrombocytopenia
     Dosage: 50 MG, QD
     Route: 048
     Dates: start: 20231105

REACTIONS (4)
  - Platelet count decreased [Unknown]
  - Bone marrow failure [Unknown]
  - Drug ineffective [Unknown]
  - Product distribution issue [Unknown]
